FAERS Safety Report 6070075-5 (Version None)
Quarter: 2009Q1

REPORT INFORMATION
  Report Type: 
  Country: None (occurrence: None)
  Receive Date: 20090130
  Receipt Date: 20090120
  Transmission Date: 20090719
  Serious: Yes (Hospitalization)
  Sender: FDA-Public Use
  Company Number: 200914576

PATIENT
  Age: 41 Year
  Sex: Female

DRUGS (2)
  1. RHOPHYLAC [Suspect]
     Dosage: 300 UG DAILY IJ
     Dates: start: 20081214
  2. CELESTENE [Concomitant]

REACTIONS (3)
  - ERYTHEMA [None]
  - GENERALISED OEDEMA [None]
  - SWELLING [None]
